FAERS Safety Report 5101589-X (Version None)
Quarter: 2006Q3

REPORT INFORMATION
  Report Type: 
  Country: None (occurrence: None)
  Receive Date: 20060731
  Receipt Date: 20060523
  Transmission Date: 20061208
  Serious: No
  Sender: FDA-Public Use
  Company Number: 2006PV014320

PATIENT
  Age: 73 Year
  Sex: Female
  Weight: 112.4921 kg

DRUGS (5)
  1. BYETTA [Suspect]
     Indication: DIABETES MELLITUS NON-INSULIN-DEPENDENT
     Dosage: 5 MCG; BID; SC
     Route: 058
     Dates: start: 20060501
  2. ACTOS [Suspect]
     Indication: DRUG USE FOR UNKNOWN INDICATION
     Dates: end: 20060101
  3. GLUCOPHAGE [Concomitant]
  4. DIOVANE [Concomitant]
  5. ACTOS [Concomitant]

REACTIONS (7)
  - HEADACHE [None]
  - INSOMNIA [None]
  - NAUSEA [None]
  - PRE-EXISTING CONDITION IMPROVED [None]
  - PRURITUS [None]
  - THERAPEUTIC RESPONSE UNEXPECTED [None]
  - WEIGHT DECREASED [None]
